FAERS Safety Report 5709488-7 (Version None)
Quarter: 2008Q2

REPORT INFORMATION
  Report Type: 
  Country: None (occurrence: None)
  Receive Date: 20080418
  Receipt Date: 20080408
  Transmission Date: 20081010
  Serious: Yes (Hospitalization, Other)
  Sender: FDA-Public Use
  Company Number: BE-AMGEN-UK274091

PATIENT
  Sex: Male
  Weight: 61 kg

DRUGS (4)
  1. KEPIVANCE [Suspect]
     Indication: MUCOSAL INFLAMMATION
     Route: 042
     Dates: start: 20080301, end: 20080303
  2. ACYCLOVIR [Concomitant]
     Route: 048
     Dates: start: 20080115
  3. OMEPRAZOLE [Concomitant]
     Route: 048
     Dates: start: 20071220
  4. ZOLPIDEM TARTRATE [Concomitant]
     Route: 048
     Dates: start: 20070220

REACTIONS (4)
  - FACE OEDEMA [None]
  - PYREXIA [None]
  - RASH [None]
  - STOMATITIS [None]
